FAERS Safety Report 4457118-7 (Version None)
Quarter: 2004Q3

REPORT INFORMATION
  Report Type: 
  Country: None (occurrence: None)
  Receive Date: 20040825
  Receipt Date: 20040510
  Transmission Date: 20050211
  Serious: No
  Sender: FDA-Public Use
  Company Number: 206415

PATIENT
  Age: 59 Year
  Sex: Male

DRUGS (5)
  1. RAPTIVA [Suspect]
     Indication: PSORIASIS
     Dosage: 100 MG, SUBCUTANEOUS
     Route: 058
     Dates: start: 20040201
  2. RAPTIVA [Suspect]
     Indication: PSORIASIS
     Dosage: 100 MG, SUBCUTANEOUS
     Route: 058
     Dates: start: 20040201
  3. ZOCOR [Concomitant]
  4. GLUCOPHAGE [Concomitant]
  5. AVANDIA [Concomitant]

REACTIONS (1)
  - FLUSHING [None]
